FAERS Safety Report 18684841 (Version 1)
Quarter: 2020Q4

REPORT INFORMATION
  Report Type: Spontaneous
  Country: US (occurrence: US)
  Receive Date: 20201230
  Receipt Date: 20201230
  Transmission Date: 20210114
  Serious: Yes (Death, Other)
  Sender: FDA-Public Use
  Company Number: US-PURDUE PHARMA-USA-2020-0157206

PATIENT
  Age: 52 Year
  Sex: Male

DRUGS (2)
  1. HYDROCODONE BITARTRATE (SIMILAR TO NDA 206627) [Suspect]
     Active Substance: HYDROCODONE BITARTRATE
     Indication: PRODUCT USED FOR UNKNOWN INDICATION
     Dosage: UNK
     Route: 065
     Dates: start: 2009
  2. PERCOCET                           /00446701/ [Suspect]
     Active Substance: ACETAMINOPHEN\OXYCODONE HYDROCHLORIDE\OXYCODONE TEREPHTHALATE
     Indication: SPINAL OPERATION
     Dosage: UNK
     Route: 065
     Dates: start: 2012

REACTIONS (3)
  - Constipation [Recovered/Resolved]
  - Weight increased [Recovered/Resolved]
  - Death [Fatal]

NARRATIVE: CASE EVENT DATE: 20170317
